FAERS Safety Report 20542324 (Version 2)
Quarter: 2022Q2

REPORT INFORMATION
  Report Type: Spontaneous
  Country: US (occurrence: US)
  Receive Date: 20220302
  Receipt Date: 20220409
  Transmission Date: 20220721
  Serious: No
  Sender: FDA-Public Use
  Company Number: US-JNJFOC-20220241897

PATIENT
  Age: 57 Year
  Sex: Female
  Weight: 81.720 kg

DRUGS (4)
  1. TREMFYA [Suspect]
     Active Substance: GUSELKUMAB
     Indication: Psoriasis
     Route: 058
     Dates: start: 20220215
  2. CORTISONE [Concomitant]
     Active Substance: CORTISONE
     Indication: Arthritis
  3. DICLOFENAC [Concomitant]
     Active Substance: DICLOFENAC
     Indication: Limb injury
     Route: 065
  4. MELOXICAM [Concomitant]
     Active Substance: MELOXICAM
     Indication: Limb injury
     Route: 065

REACTIONS (8)
  - Device malfunction [Unknown]
  - Accidental exposure to product [Unknown]
  - Product dose omission issue [Unknown]
  - Arthritis [Unknown]
  - Rash [Unknown]
  - Alopecia [Unknown]
  - Psoriasis [Unknown]
  - Limb injury [Unknown]

NARRATIVE: CASE EVENT DATE: 20220215
